FAERS Safety Report 8320035-6 (Version None)
Quarter: 2012Q2

REPORT INFORMATION
  Report Type: 
  Country: None (occurrence: None)
  Receive Date: 20120427
  Receipt Date: 20120322
  Transmission Date: 20120825
  Serious: Yes (Death)
  Sender: FDA-Public Use
  Company Number: TW-BAXTER-2012BAX000406

PATIENT

DRUGS (1)
  1. DIANEAL LOW CALCIUM (2.5MEQ/L) PERITONEAL DIALYSIS SOLUTION WITH 4.25% [Suspect]
     Route: 033

REACTIONS (1)
  - CHOKING [None]
